FAERS Safety Report 16188366 (Version 1)
Quarter: 2019Q2

REPORT INFORMATION
  Report Type: Spontaneous
  Country: US (occurrence: US)
  Receive Date: 20190412
  Receipt Date: 20190412
  Transmission Date: 20190711
  Serious: No
  Sender: FDA-Public Use
  Company Number: US-TEVA-2019-US-1033717

PATIENT
  Sex: Female

DRUGS (1)
  1. AUSTEDO [Suspect]
     Active Substance: DEUTETRABENAZINE
     Indication: CHOREA
     Dosage: 72 MILLIGRAM DAILY; THREE 12 MILIGRAMS TWICE DAILY
     Dates: start: 201705

REACTIONS (2)
  - Prescribed overdose [Unknown]
  - Off label use [Unknown]
